FAERS Safety Report 12059539 (Version 1)
Quarter: 2016Q1

REPORT INFORMATION
  Report Type: Spontaneous
  Country: US (occurrence: None)
  Receive Date: 20160209
  Receipt Date: 20160209
  Transmission Date: 20160526
  Serious: Yes (Other)
  Sender: FDA-Public Use
  Company Number: None

PATIENT
  Sex: Male
  Weight: 81.78 kg

DRUGS (12)
  1. LITHIUM. [Concomitant]
     Active Substance: LITHIUM
  2. LACTULOSE. [Concomitant]
     Active Substance: LACTULOSE
  3. VIGAMOX [Concomitant]
     Active Substance: MOXIFLOXACIN HYDROCHLORIDE
  4. MAXITROL [Concomitant]
     Active Substance: DEXAMETHASONE\NEOMYCIN SULFATE\POLYMYXIN B SULFATE
  5. DORSELAMIDE-TIMOLOL OPHTHALMIC SOLUTION [Concomitant]
  6. HARVONI [Suspect]
     Active Substance: LEDIPASVIR\SOFOSBUVIR
     Indication: CHRONIC HEPATITIS C
     Dosage: 90MG/400MG
     Route: 048
     Dates: start: 20150709, end: 20151224
  7. XALATAN [Concomitant]
     Active Substance: LATANOPROST
  8. CITALOPRAM [Concomitant]
     Active Substance: CITALOPRAM HYDROBROMIDE
  9. CLONAZEPAM. [Concomitant]
     Active Substance: CLONAZEPAM
  10. PREDNISOLONE ACETATE. [Concomitant]
     Active Substance: PREDNISOLONE ACETATE
  11. FLOMAX [Concomitant]
     Active Substance: TAMSULOSIN HYDROCHLORIDE
  12. CAMPHOR MENTHOL LOTION [Concomitant]

REACTIONS (2)
  - Hepatocellular carcinoma [None]
  - Metastatic lymphoma [None]

NARRATIVE: CASE EVENT DATE: 20151022
